FAERS Safety Report 15921103 (Version 1)
Quarter: 2019Q1

REPORT INFORMATION
  Report Type: Spontaneous
  Country: DE (occurrence: DE)
  Receive Date: 20190205
  Receipt Date: 20190205
  Transmission Date: 20190417
  Serious: Yes (Other)
  Sender: FDA-Public Use
  Company Number: DE-EX USA HOLDINGS-EXHL20190046

PATIENT
  Age: 43 Year
  Sex: Female
  Weight: 64 kg

DRUGS (20)
  1. MARVELON [Suspect]
     Active Substance: DESOGESTREL\ETHINYL ESTRADIOL
     Indication: OSTEOPENIA
  2. VALSARTAN. [Suspect]
     Active Substance: VALSARTAN
     Indication: HYPERTENSION
     Dosage: 160 MG
     Route: 065
  3. MAXIM [DIENOGEST;ETHINYLESTRADIOL] [Suspect]
     Active Substance: DIENOGEST\ETHINYL ESTRADIOL
     Indication: PRODUCT USED FOR UNKNOWN INDICATION
     Dosage: UNKNOWN
     Route: 048
     Dates: start: 20160803, end: 2017
  4. VALETTE [Suspect]
     Active Substance: DIENOGEST\ETHINYL ESTRADIOL
     Indication: CONTRACEPTION
     Dosage: UNKNOWN
     Route: 048
  5. DIANE (CYPROTERONE ACETATE\ETHINYL ESTRADIOL) [Suspect]
     Active Substance: CYPROTERONE ACETATE\ETHINYL ESTRADIOL
     Indication: OSTEOPENIA
  6. VALSARTAN. [Suspect]
     Active Substance: VALSARTAN
     Indication: HYPOVITAMINOSIS
  7. FEMIGOA [Suspect]
     Active Substance: ETHINYL ESTRADIOL\LEVONORGESTREL
     Indication: CONTRACEPTION
     Dosage: UNKNOWN
     Route: 048
  8. FEMIGOA [Suspect]
     Active Substance: ETHINYL ESTRADIOL\LEVONORGESTREL
     Indication: OSTEOPENIA
  9. DIANE (CYPROTERONE ACETATE\ETHINYL ESTRADIOL) [Suspect]
     Active Substance: CYPROTERONE ACETATE\ETHINYL ESTRADIOL
     Indication: CONTRACEPTION
     Route: 048
     Dates: start: 1987, end: 1993
  10. METOPROLOL. [Suspect]
     Active Substance: METOPROLOL
     Indication: HYPERTENSION
     Dosage: UNKNOWN
     Route: 065
  11. CYCLOSA [Suspect]
     Active Substance: DESOGESTREL\ETHINYL ESTRADIOL
     Indication: CONTRACEPTION
     Dosage: UNKNOWN
     Route: 048
  12. MOREA [Suspect]
     Active Substance: CYPROTERONE ACETATE\ETHINYL ESTRADIOL
     Indication: ACNE
     Dosage: UNKNOWN
     Route: 065
  13. MOREA SANOL [Suspect]
     Active Substance: CYPROTERONE ACETATE\ETHINYL ESTRADIOL
     Indication: CONTRACEPTION
     Dosage: UNKNOWN
     Route: 065
  14. MARVELON [Suspect]
     Active Substance: DESOGESTREL\ETHINYL ESTRADIOL
     Indication: CONTRACEPTION
     Dosage: UNKNOWN
     Route: 048
  15. MARVELON [Suspect]
     Active Substance: DESOGESTREL\ETHINYL ESTRADIOL
     Indication: BLOOD PROLACTIN ABNORMAL
  16. CYCLOSA [Suspect]
     Active Substance: DESOGESTREL\ETHINYL ESTRADIOL
     Indication: OSTEOPENIA
  17. VALETTE [Suspect]
     Active Substance: DIENOGEST\ETHINYL ESTRADIOL
     Indication: OSTEOPENIA
  18. YARA HEXAL [Suspect]
     Active Substance: DROSPIRENONE\ETHINYL ESTRADIOL
     Indication: CONTRACEPTION
     Dosage: UNKNOWN
     Route: 065
     Dates: start: 201608
  19. DIANE (CYPROTERONE ACETATE\ETHINYL ESTRADIOL) [Suspect]
     Active Substance: CYPROTERONE ACETATE\ETHINYL ESTRADIOL
     Indication: ACNE
  20. VITAMIN D [Suspect]
     Active Substance: CHOLECALCIFEROL
     Indication: HYPOVITAMINOSIS
     Dosage: UNKNOWN
     Route: 065

REACTIONS (4)
  - Focal nodular hyperplasia [Unknown]
  - Off label use [None]
  - Drug ineffective for unapproved indication [Unknown]
  - Cholecystectomy [Unknown]

NARRATIVE: CASE EVENT DATE: 2011
